FAERS Safety Report 13457976 (Version 4)
Quarter: 2017Q3

REPORT INFORMATION
  Report Type: Spontaneous
  Country: US (occurrence: US)
  Receive Date: 20170419
  Receipt Date: 20170831
  Transmission Date: 20171127
  Serious: No
  Sender: FDA-Public Use
  Company Number: US-BIO PRODUCTS LABORATORY LTD-1065506

PATIENT
  Age: 63 Year
  Sex: Female
  Weight: 86 kg

DRUGS (10)
  1. FENTANYL. [Concomitant]
     Active Substance: FENTANYL
  2. METOPROLOL. [Concomitant]
     Active Substance: METOPROLOL
  3. MELOXICAM. [Concomitant]
     Active Substance: MELOXICAM
  4. METHOTREXATE. [Concomitant]
     Active Substance: METHOTREXATE
  5. PREDNISOLONE. [Concomitant]
     Active Substance: PREDNISOLONE
  6. GAMMAPLEX [Suspect]
     Active Substance: HUMAN IMMUNOGLOBULIN G
     Indication: POLYNEUROPATHY
     Route: 042
     Dates: start: 20170207, end: 20170209
  7. AMITRYPTILINE [Concomitant]
     Active Substance: AMITRIPTYLINE
  8. FOLIC ACID. [Concomitant]
     Active Substance: FOLIC ACID
  9. FUROSEMIDE. [Concomitant]
     Active Substance: FUROSEMIDE
  10. ROPINIROLE. [Concomitant]
     Active Substance: ROPINIROLE

REACTIONS (7)
  - Blister [None]
  - Miliaria [None]
  - Rash pruritic [Recovered/Resolved]
  - Chest pain [Recovered/Resolved]
  - Off label use [None]
  - Rash maculo-papular [Recovered/Resolved]
  - Tachycardia [Recovered/Resolved]

NARRATIVE: CASE EVENT DATE: 20170209
